FAERS Safety Report 4330685-X (Version None)
Quarter: 2004Q1

REPORT INFORMATION
  Report Type: 
  Country: None (occurrence: None)
  Receive Date: 20040329
  Receipt Date: 20040312
  Transmission Date: 20041129
  Serious: Yes (Hospitalization)
  Sender: FDA-Public Use
  Company Number: BDI-005948

PATIENT
  Age: 66 Year
  Sex: Female

DRUGS (6)
  1. IOPAMIDOL [Suspect]
     Indication: CATHETERISATION CARDIAC
     Dosage: SY
  2. IOPAMIDOL [Suspect]
     Indication: CHEST PAIN
     Dosage: SY
  3. ISOVUE-300 [Suspect]
     Indication: CATHETERISATION CARDIAC
     Dosage: SY
  4. ISOVUE-300 [Suspect]
     Indication: CHEST PAIN
     Dosage: SY
  5. ISOVUE-300 [Suspect]
     Indication: CATHETERISATION CARDIAC
     Dosage: SY
  6. ISOVUE-300 [Suspect]
     Indication: CHEST PAIN
     Dosage: SY

REACTIONS (1)
  - STEVENS-JOHNSON SYNDROME [None]
